FAERS Safety Report 19304862 (Version 3)
Quarter: 2021Q3

REPORT INFORMATION
  Report Type: Spontaneous
  Country: GB (occurrence: GB)
  Receive Date: 20210525
  Receipt Date: 20210714
  Transmission Date: 20211014
  Serious: Yes (Hospitalization, Other)
  Sender: FDA-Public Use
  Company Number: GB-MYLANLABS-2021M1030411

PATIENT
  Age: 29 Year
  Sex: Female

DRUGS (4)
  1. NORETHISTERONE [Concomitant]
     Active Substance: NORETHINDRONE
     Dosage: 350 MICROGRAM, QD
     Route: 048
  2. CLOZARIL [Suspect]
     Active Substance: CLOZAPINE
     Dosage: 250 MILLIGRAM, QD
     Route: 048
  3. VORTIOXETINE. [Concomitant]
     Active Substance: VORTIOXETINE
     Dosage: 10 MILLIGRAM, QD
     Route: 048
  4. CLOZARIL [Suspect]
     Active Substance: CLOZAPINE
     Indication: SCHIZOPHRENIA
     Dosage: UNK
     Route: 048
     Dates: start: 20151207, end: 20210701

REACTIONS (2)
  - Mental impairment [Recovered/Resolved]
  - Antipsychotic drug level above therapeutic [Unknown]
